FAERS Safety Report 7267137-3 (Version None)
Quarter: 2011Q1

REPORT INFORMATION
  Report Type: 
  Country: None (occurrence: None)
  Receive Date: 20110119
  Receipt Date: 20110114
  Transmission Date: 20110831
  Serious: Yes (Death)
  Sender: FDA-Public Use
  Company Number: 2010SP065953

PATIENT

DRUGS (1)
  1. TEMODAL [Suspect]

REACTIONS (4)
  - ENTEROCOLITIS [None]
  - PNEUMONIA [None]
  - MASS [None]
  - CYTOMEGALOVIRUS INFECTION [None]
